FAERS Safety Report 6654757-X (Version None)
Quarter: 2010Q1

REPORT INFORMATION
  Report Type: 
  Country: None (occurrence: None)
  Receive Date: 20100328
  Receipt Date: 20100222
  Transmission Date: 20100710
  Serious: Yes (Other)
  Sender: FDA-Public Use
  Company Number: US-BAYER-200938493NA

PATIENT
  Age: 62 Year
  Sex: Female

DRUGS (11)
  1. BETASERON [Suspect]
     Indication: RELAPSING-REMITTING MULTIPLE SCLEROSIS
     Dosage: TOTAL DAILY DOSE: 6 MIU
     Route: 058
     Dates: start: 20100101
  2. BETASERON [Suspect]
     Dosage: TOTAL DAILY DOSE: 6 MIU
     Route: 058
  3. BETASERON [Suspect]
     Dosage: TOTAL DAILY DOSE: 8 MIU
     Route: 058
     Dates: end: 20091207
  4. BETASERON [Suspect]
     Dosage: TOTAL DAILY DOSE: 8 MIU
     Route: 058
  5. BETASERON [Suspect]
     Dosage: TOTAL DAILY DOSE: 4 MIU
     Route: 058
     Dates: start: 20090806
  6. MOBIC [Concomitant]
     Indication: PREMEDICATION
     Dosage: 2 HOURS PRIOR INJECTION
     Route: 065
  7. BACLOFEN [Concomitant]
     Indication: MUSCLE SPASMS
     Route: 065
  8. NEURONTIN [Concomitant]
     Route: 065
  9. KLONOPIN [Concomitant]
     Indication: DYSKINESIA
     Route: 065
  10. NORTRIPTYLINE HCL [Concomitant]
     Route: 065
  11. DIAZEPAM [Concomitant]
     Route: 065

REACTIONS (19)
  - ASTHENIA [None]
  - BALANCE DISORDER [None]
  - BODY TEMPERATURE INCREASED [None]
  - COUGH [None]
  - DIARRHOEA [None]
  - DYSKINESIA [None]
  - DYSPHONIA [None]
  - DYSPNOEA [None]
  - FATIGUE [None]
  - GAIT DISTURBANCE [None]
  - HEPATIC ENZYME INCREASED [None]
  - MALAISE [None]
  - MUSCLE SPASMS [None]
  - MUSCLE SPASTICITY [None]
  - NASAL CONGESTION [None]
  - PAIN IN EXTREMITY [None]
  - PYREXIA [None]
  - SINUSITIS [None]
  - SOMNOLENCE [None]
